FAERS Safety Report 9747910 (Version 1)
Quarter: 2013Q4

REPORT INFORMATION
  Report Type: Spontaneous
  Country: US (occurrence: US)
  Receive Date: 20131212
  Receipt Date: 20131212
  Transmission Date: 20140711
  Serious: Yes (Other)
  Sender: FDA-Public Use
  Company Number: US-TEVA-388048USA

PATIENT
  Age: 19 Year
  Sex: Female

DRUGS (2)
  1. PARAGARD 380A [Suspect]
     Indication: CONTRACEPTION
     Route: 015
     Dates: start: 20121113, end: 20130108
  2. PARAGARD 380A [Suspect]
     Route: 015
     Dates: start: 20130108

REACTIONS (4)
  - Device dislocation [Not Recovered/Not Resolved]
  - Metrorrhagia [Recovered/Resolved]
  - Muscle spasms [Recovered/Resolved]
  - Device expulsion [Recovered/Resolved]
